FAERS Safety Report 6984632-2 (Version None)
Quarter: 2010Q3

REPORT INFORMATION
  Report Type: 
  Country: None (occurrence: None)
  Receive Date: 20100914
  Receipt Date: 20100914
  Transmission Date: 20110219
  Serious: No
  Sender: FDA-Public Use
  Company Number: None

PATIENT
  Age: 16 Year
  Sex: Male
  Weight: 79.3795 kg

DRUGS (4)
  1. RISPERIDONE [Suspect]
     Dosage: 2MG Q HS PO
     Route: 048
  2. TRAZODONE HCL [Concomitant]
  3. DDAVP [Concomitant]
  4. IBUPROFEN [Concomitant]

REACTIONS (1)
  - TONGUE DISORDER [None]
